FAERS Safety Report 12680634 (Version 2)
Quarter: 2016Q3

REPORT INFORMATION
  Report Type: Spontaneous
  Country: CN (occurrence: CN)
  Receive Date: 20160824
  Receipt Date: 20160825
  Transmission Date: 20161109
  Serious: Yes (Hospitalization, Other)
  Sender: FDA-Public Use
  Company Number: CN-BAYER-2016-159164

PATIENT
  Age: 37 Year
  Sex: Male

DRUGS (3)
  1. WARFARIN [Concomitant]
     Active Substance: WARFARIN
     Dosage: 4.5 MG, QD
  2. BAYASPIRIN [Suspect]
     Active Substance: ASPIRIN
     Indication: DEEP VEIN THROMBOSIS
     Dosage: 100 MG, QD
  3. WARFARIN [Concomitant]
     Active Substance: WARFARIN
     Dosage: UNK

REACTIONS (5)
  - Melaena [None]
  - Haemorrhage subcutaneous [None]
  - Abdominal pain [None]
  - Thrombophlebitis superficial [None]
  - Pelvic venous thrombosis [None]
